FAERS Safety Report 5402323-6 (Version None)
Quarter: 2007Q3

REPORT INFORMATION
  Report Type: 
  Country: None (occurrence: None)
  Receive Date: 20070801
  Receipt Date: 20070719
  Transmission Date: 20080115
  Serious: Yes (Death, Hospitalization, Other)
  Sender: FDA-Public Use
  Company Number: TW-AVENTIS-200715733GDDC

PATIENT
  Age: 86 Year
  Sex: Male
  Weight: 76 kg

DRUGS (8)
  1. FLUOROURACIL [Suspect]
     Dosage: DOSE: 2600 MG/M2  24 HOUR CONTINUOIS INFUSION
     Route: 041
     Dates: start: 20060321, end: 20060321
  2. ANTREX [Suspect]
     Dates: start: 20060321, end: 20060321
  3. RADIOTHERAPY [Suspect]
     Dosage: DOSE: 4500CGY/25 FRACTIONS
  4. ULTRACET [Concomitant]
     Indication: PAIN MANAGEMENT
  5. KAOPECTIN [Concomitant]
  6. IMODIUM [Concomitant]
  7. I.V. SOLUTIONS [Concomitant]
  8. NORVASC [Concomitant]
     Indication: HYPERTENSION
     Dosage: DOSE: 5 MG
     Route: 048

REACTIONS (1)
  - ENTEROCOLITIS [None]
